FAERS Safety Report 16289292 (Version 3)
Quarter: 2019Q2

REPORT INFORMATION
  Report Type: Spontaneous
  Country: US (occurrence: US)
  Receive Date: 20190509
  Receipt Date: 20190618
  Transmission Date: 20190711
  Serious: No
  Sender: FDA-Public Use
  Company Number: US-GW PHARMA-201902USGW0275

PATIENT

DRUGS (3)
  1. EPIDIOLEX [Suspect]
     Active Substance: CANNABIDIOL
     Indication: EPILEPSY
     Dosage: 4.26 MG/KG, 75 MILLIGRAM, BID
     Route: 048
     Dates: start: 20190114
  2. BRIVIACT [Concomitant]
     Active Substance: BRIVARACETAM
     Indication: PRODUCT USED FOR UNKNOWN INDICATION
     Dosage: 100 MILLIGRAM, BID
     Route: 065
  3. ONFI [Concomitant]
     Active Substance: CLOBAZAM
     Indication: PRODUCT USED FOR UNKNOWN INDICATION
     Dosage: 15 MILLIGRAM, BID
     Route: 065

REACTIONS (3)
  - Off label use [Not Recovered/Not Resolved]
  - Drooling [Unknown]
  - Hemiparesis [Unknown]

NARRATIVE: CASE EVENT DATE: 20190114
